FAERS Safety Report 8363640-3 (Version None)
Quarter: 2012Q2

REPORT INFORMATION
  Report Type: 
  Country: None (occurrence: None)
  Receive Date: 20120516
  Receipt Date: 20120507
  Transmission Date: 20120825
  Serious: Yes (Other)
  Sender: FDA-Public Use
  Company Number: DK-NOVOPROD-345894

PATIENT
  Age: 56 Year
  Sex: Female
  Weight: 56 kg

DRUGS (3)
  1. VAGIFEM [Suspect]
     Indication: MENOPAUSAL SYMPTOMS
     Dosage: 1 TAB, QD
     Dates: end: 20110301
  2. VAGIFEM [Suspect]
     Dosage: 1 TAB, QD
     Route: 067
     Dates: start: 20110927, end: 20111101
  3. NORETHINDRONE AND ESTRADIOL [Suspect]
     Indication: OSTEOPOROSIS
     Dosage: 1 TAB, QD 25 MG QD
     Route: 048
     Dates: start: 20100809

REACTIONS (2)
  - ATRIAL FIBRILLATION [None]
  - EXTRASYSTOLES [None]
